FAERS Safety Report 5941560-9 (Version None)
Quarter: 2008Q4

REPORT INFORMATION
  Report Type: 
  Country: None (occurrence: None)
  Receive Date: 20081105
  Receipt Date: 20081028
  Transmission Date: 20090506
  Serious: Yes (Other)
  Sender: FDA-Public Use
  Company Number: US-ASTRAZENECA-2008UW24208

PATIENT
  Age: 73 Year
  Sex: Female

DRUGS (4)
  1. ARIMIDEX [Suspect]
     Indication: BREAST CANCER
     Route: 048
     Dates: start: 20070601
  2. SYNTHROID [Suspect]
  3. SIMVASTATIN [Concomitant]
  4. VITAMINS [Concomitant]

REACTIONS (6)
  - DEPRESSION [None]
  - HOT FLUSH [None]
  - LOSS OF CONSCIOUSNESS [None]
  - MACULAR DEGENERATION [None]
  - PAIN IN EXTREMITY [None]
  - WEIGHT DECREASED [None]
